FAERS Safety Report 8362776-0 (Version None)
Quarter: 2012Q2

REPORT INFORMATION
  Report Type: 
  Country: None (occurrence: None)
  Receive Date: 20120516
  Receipt Date: 20120508
  Transmission Date: 20120825
  Serious: Yes (Other)
  Sender: FDA-Public Use
  Company Number: PHHY2011JP88343

PATIENT
  Age: 48 Year
  Sex: Female

DRUGS (9)
  1. TOREMIFENE [Concomitant]
  2. ZOLEDRONIC [Suspect]
     Dosage: TWICE GIVEN- (ONCE A MONTH DOSE)
     Route: 041
     Dates: start: 20100801, end: 20100801
  3. EXEMESTANE [Concomitant]
  4. ZOLEDRONIC [Suspect]
     Indication: METASTASES TO BONE
     Dosage: UNK UKN, UNK
     Route: 041
     Dates: start: 20061001, end: 20071101
  5. AREDIA [Suspect]
     Indication: METASTASES TO BONE
     Dosage: UNK UKN, UNK
     Route: 041
     Dates: start: 20050701, end: 20060901
  6. RADIATION THERAPY [Concomitant]
  7. MORPHINE [Concomitant]
     Indication: METASTATIC PAIN
     Dates: start: 20070801
  8. OXYCODONE HCL [Concomitant]
  9. METASTRON [Concomitant]
     Dates: start: 20100201

REACTIONS (6)
  - GINGIVITIS [None]
  - PATHOLOGICAL FRACTURE [None]
  - CLAVICLE FRACTURE [None]
  - NEOPLASM PROGRESSION [None]
  - NEOPLASM MALIGNANT [None]
  - PUBIS FRACTURE [None]
